FAERS Safety Report 5758314-9 (Version None)
Quarter: 2008Q2

REPORT INFORMATION
  Report Type: 
  Country: None (occurrence: None)
  Receive Date: 20080604
  Receipt Date: 20071126
  Transmission Date: 20081010
  Serious: No
  Sender: FDA-Public Use
  Company Number: US-BAYER-200715411NA

PATIENT
  Age: 30 Year
  Sex: Female
  Weight: 61 kg

DRUGS (2)
  1. MIRENA [Suspect]
     Indication: ORAL CONTRACEPTION
     Route: 015
     Dates: start: 20070521
  2. PRENATAL VITAMINS NOS [Concomitant]

REACTIONS (4)
  - ACNE [None]
  - BACK PAIN [None]
  - ORAL DISCOMFORT [None]
  - UTERINE SPASM [None]
